FAERS Safety Report 10153092 (Version 5)
Quarter: 2014Q2

REPORT INFORMATION
  Report Type: Spontaneous
  Country: JP (occurrence: JP)
  Receive Date: 20140505
  Receipt Date: 20140610
  Transmission Date: 20141212
  Serious: No
  Sender: FDA-Public Use
  Company Number: JP-BRISTOL-MYERS SQUIBB COMPANY-20658308

PATIENT
  Sex: Female

DRUGS (2)
  1. ELIQUIS [Suspect]
     Indication: ULCER HAEMORRHAGE
     Route: 048
  2. ELIQUIS [Suspect]
     Indication: URINARY TRACT INFECTION
     Route: 048

REACTIONS (1)
  - Eczema [Unknown]
